FAERS Safety Report 12826874 (Version 1)
Quarter: 2016Q4

REPORT INFORMATION
  Report Type: Spontaneous
  Country: US (occurrence: US)
  Receive Date: 20161006
  Receipt Date: 20161006
  Transmission Date: 20170207
  Serious: No
  Sender: FDA-Public Use
  Company Number: US-INDIVIOR LIMITED-INDV-088343-2016

PATIENT
  Age: 36 Year
  Sex: Female

DRUGS (3)
  1. SUBOXONE [Suspect]
     Active Substance: BUPRENORPHINE HYDROCHLORIDE\NALOXONE HYDROCHLORIDE
     Dosage: CUT AN 8 MG FILM AND TOOK PIECES OF IT 3 TIMES A DAY
     Route: 060
     Dates: start: 20160228, end: 20160228
  2. SUBOXONE [Suspect]
     Active Substance: BUPRENORPHINE HYDROCHLORIDE\NALOXONE HYDROCHLORIDE
     Indication: DRUG DEPENDENCE
     Dosage: 8 MG, QD
     Route: 060
     Dates: start: 2014, end: 20160105
  3. SUBOXONE [Suspect]
     Active Substance: BUPRENORPHINE HYDROCHLORIDE\NALOXONE HYDROCHLORIDE
     Dosage: 4MG, ONCE
     Route: 060
     Dates: start: 20160222, end: 20160222

REACTIONS (5)
  - Plantar fasciitis [Recovered/Resolved]
  - Product preparation error [Recovered/Resolved]
  - Cold sweat [Not Recovered/Not Resolved]
  - Intentional product misuse [Recovered/Resolved]
  - Tendon rupture [Recovered/Resolved]

NARRATIVE: CASE EVENT DATE: 20160119
